FAERS Safety Report 5101274-4 (Version None)
Quarter: 2006Q3

REPORT INFORMATION
  Report Type: 
  Country: None (occurrence: None)
  Receive Date: 20060911
  Receipt Date: 20060830
  Transmission Date: 20061208
  Serious: Yes (Other)
  Sender: FDA-Public Use
  Company Number: PHBS2006HK13371

PATIENT
  Age: 4 Year
  Sex: Male

DRUGS (5)
  1. CYCLOSPORINE [Suspect]
     Indication: CORD BLOOD TRANSPLANT THERAPY
     Dosage: 2 MG/KG, BID
     Route: 065
  2. METHOTREXATE [Suspect]
     Indication: CORD BLOOD TRANSPLANT THERAPY
     Route: 065
  3. BUSULPHAN [Concomitant]
     Dosage: 5 MG/KG/D
  4. CYCLOPHOSPHAMIDE [Concomitant]
     Dosage: 50 MG/KG/D
     Route: 065
  5. ATGAM [Concomitant]
     Dosage: 30 MG/KG/D
     Route: 065

REACTIONS (3)
  - ACUTE GRAFT VERSUS HOST DISEASE IN SKIN [None]
  - CYSTITIS HAEMORRHAGIC [None]
  - TOXIC INDUCED ENCEPHALOPATHY [None]
